FAERS Safety Report 25478999 (Version 1)
Quarter: 2025Q2

REPORT INFORMATION
  Report Type: Report from Study
  Country: CO (occurrence: CO)
  Receive Date: 20250625
  Receipt Date: 20250625
  Transmission Date: 20250717
  Serious: Yes (Hospitalization)
  Sender: EISAI
  Company Number: CO-Eisai-EC-2025-191918

PATIENT
  Age: 73 Year
  Sex: Female
  Weight: 65.00 kg

DRUGS (4)
  1. LENVIMA [Suspect]
     Active Substance: LENVATINIB
     Indication: Thyroid cancer
     Dates: start: 20240705, end: 20250604
  2. LENVIMA [Suspect]
     Active Substance: LENVATINIB
     Dates: start: 20250616
  3. VALSARTAN [Concomitant]
     Active Substance: VALSARTAN
     Indication: Product used for unknown indication
  4. AMLODIPINE [Concomitant]
     Active Substance: AMLODIPINE BESYLATE

REACTIONS (3)
  - Dehydration [Recovered/Resolved]
  - Diarrhoea haemorrhagic [Recovered/Resolved]
  - Diarrhoea [Recovered/Resolved]

NARRATIVE: CASE EVENT DATE: 20250606
